FAERS Safety Report 18807258 (Version 1)
Quarter: 2021Q1

REPORT INFORMATION
  Report Type: Spontaneous
  Country: US (occurrence: US)
  Receive Date: 20210128
  Receipt Date: 20210128
  Transmission Date: 20210419
  Serious: Yes (Other)
  Sender: FDA-Public Use
  Company Number: US-ROCHE-2758661

PATIENT
  Age: 64 Year
  Sex: Female

DRUGS (12)
  1. EPINEPHRINE. [Concomitant]
     Active Substance: EPINEPHRINE
  2. MOMETASONE [Concomitant]
     Active Substance: MOMETASONE
  3. LEVOTHYROXINE. [Concomitant]
     Active Substance: LEVOTHYROXINE
  4. SIMVASTATIN. [Concomitant]
     Active Substance: SIMVASTATIN
  5. XOLAIR [Suspect]
     Active Substance: OMALIZUMAB
     Indication: IDIOPATHIC URTICARIA
     Route: 058
     Dates: start: 20200227
  6. FAMOTIDINE. [Concomitant]
     Active Substance: FAMOTIDINE
  7. PAZEO [Concomitant]
     Active Substance: OLOPATADINE HYDROCHLORIDE
  8. ESZOPICLONE. [Concomitant]
     Active Substance: ESZOPICLONE
  9. HYDROCHLOROTH [Concomitant]
     Active Substance: HYDROCHLOROTHIAZIDE
  10. LEVALBUTEROL. [Concomitant]
     Active Substance: LEVALBUTEROL
  11. NITROFURANTOIN. [Concomitant]
     Active Substance: NITROFURANTOIN
  12. TRAZODONE [Concomitant]
     Active Substance: TRAZODONE HYDROCHLORIDE

REACTIONS (9)
  - Abdominal pain [Unknown]
  - Fatigue [Unknown]
  - Muscular weakness [Not Recovered/Not Resolved]
  - Blood pressure increased [Not Recovered/Not Resolved]
  - Intentional product misuse [Unknown]
  - Off label use [Unknown]
  - Diarrhoea [Unknown]
  - Chills [Unknown]
  - Heart rate increased [Unknown]

NARRATIVE: CASE EVENT DATE: 20210119
